FAERS Safety Report 9838164 (Version 2)
Quarter: 2014Q1

REPORT INFORMATION
  Report Type: Spontaneous
  Country: US (occurrence: US)
  Receive Date: 20140123
  Receipt Date: 20140123
  Transmission Date: 20141002
  Serious: Yes (Hospitalization)
  Sender: FDA-Public Use
  Company Number: US-B.I. PHARMACEUTICALS,INC./RIDGEFIELD-2013-BI-24533BP

PATIENT
  Sex: Male
  Weight: 110.68 kg

DRUGS (14)
  1. PRADAXA [Suspect]
     Dosage: 300 MG
     Dates: start: 20111220, end: 20120102
  2. ALBUTEROL [Concomitant]
     Dosage: 8 PUF
  3. ASPIRIN [Concomitant]
  4. CALCIUM + D [Concomitant]
  5. KLONOPIN [Concomitant]
     Dosage: 2 MG
  6. MULTAQ [Concomitant]
     Dosage: 800 MG
  7. HYDROCODONE-APAP [Concomitant]
  8. LISINOPRIL [Concomitant]
     Dosage: 5 MG
  9. LOPRESSOR [Concomitant]
     Dosage: 50 MG
  10. NITROGLYCERIN [Concomitant]
     Indication: CHEST PAIN
  11. PROTONIX [Concomitant]
     Dosage: 40 MG
  12. CRESTOR [Concomitant]
     Dosage: 20 MG
  13. DESYREL [Concomitant]
     Dosage: 200 MG
  14. EFFEXOR [Concomitant]
     Dosage: 150 MG

REACTIONS (1)
  - Rectal haemorrhage [Unknown]
